FAERS Safety Report 11655028 (Version 2)
Quarter: 2015Q4

REPORT INFORMATION
  Report Type: Spontaneous
  Country: DE (occurrence: DE)
  Receive Date: 20151023
  Receipt Date: 20151105
  Transmission Date: 20160304
  Serious: Yes (Other)
  Sender: FDA-Public Use
  Company Number: DE-WATSON-2015-22165

PATIENT
  Age: 66 Year
  Sex: Female
  Weight: 68 kg

DRUGS (2)
  1. BISOPROLOL (UNKNOWN) [Interacting]
     Active Substance: BISOPROLOL
     Indication: HYPERTENSIVE CRISIS
     Dosage: 25 MG, BID
     Route: 048
     Dates: start: 20150920
  2. AMLODIPINE [Suspect]
     Active Substance: AMLODIPINE BESYLATE
     Indication: HYPERTENSIVE CRISIS
     Dosage: 10 MG, DAILY
     Route: 048
     Dates: start: 20150920

REACTIONS (10)
  - Gastrointestinal pain [Unknown]
  - Fatigue [Unknown]
  - Heart rate irregular [Unknown]
  - Hypotension [Unknown]
  - Drug interaction [Unknown]
  - Headache [Unknown]
  - Nausea [Unknown]
  - Flushing [Unknown]
  - Dizziness [Unknown]
  - Somnolence [Unknown]

NARRATIVE: CASE EVENT DATE: 201509
